FAERS Safety Report 24444697 (Version 2)
Quarter: 2024Q4

REPORT INFORMATION
  Report Type: Report from Study
  Country: US (occurrence: US)
  Receive Date: 20241016
  Receipt Date: 20241017
  Transmission Date: 20250114
  Serious: No
  Sender: ROCHE
  Company Number: US-ROCHE-2945756

PATIENT
  Age: 43 Year
  Sex: Male

DRUGS (9)
  1. RITUXAN [Suspect]
     Active Substance: RITUXIMAB
     Indication: Relapsing multiple sclerosis
     Dosage: FREQUENCY TEXT:DAY 1 AND DAY 15 Q4 MONTHS
     Route: 042
  2. BACLOFEN [Concomitant]
     Active Substance: BACLOFEN
  3. CARBAMAZEPINE [Concomitant]
     Active Substance: CARBAMAZEPINE
  4. DALFAMPRIDINE [Concomitant]
     Active Substance: DALFAMPRIDINE
  5. HYDROCODONE [Concomitant]
     Active Substance: HYDROCODONE
  6. SILDENAFIL [Concomitant]
     Active Substance: SILDENAFIL
  7. TIZANIDINE [Concomitant]
     Active Substance: TIZANIDINE
  8. GILENYA [Concomitant]
     Active Substance: FINGOLIMOD HYDROCHLORIDE
  9. GLATOPA [Concomitant]
     Active Substance: GLATIRAMER ACETATE

REACTIONS (2)
  - Off label use [Unknown]
  - No adverse event [Unknown]
